FAERS Safety Report 4909939-1 (Version None)
Quarter: 2006Q1

REPORT INFORMATION
  Report Type: 
  Country: None (occurrence: None)
  Receive Date: 20060208
  Receipt Date: 20060126
  Transmission Date: 20060701
  Serious: Yes (Death, Hospitalization)
  Sender: FDA-Public Use
  Company Number: 2006008638

PATIENT
  Age: 92 Year
  Sex: Male

DRUGS (4)
  1. ZITHROMAX [Suspect]
     Indication: TONSILLITIS
     Dosage: 500 MG, ORAL
     Route: 048
     Dates: start: 20060107, end: 20060109
  2. ROCEPHIN [Suspect]
     Indication: ILL-DEFINED DISORDER
     Dosage: 2 GRAMS, INTRAVENOUS
     Route: 042
     Dates: start: 20060106, end: 20060106
  3. DASEN (SERRAPEPTASE) [Suspect]
     Indication: ILL-DEFINED DISORDER
     Dosage: ORAL
     Route: 048
  4. PL (PYRIDOXAL) [Concomitant]

REACTIONS (5)
  - ALANINE AMINOTRANSFERASE INCREASED [None]
  - ASPARTATE AMINOTRANSFERASE INCREASED [None]
  - BLOOD LACTATE DEHYDROGENASE INCREASED [None]
  - RESPIRATORY FAILURE [None]
  - VIRAL INFECTION [None]
